FAERS Safety Report 24760047 (Version 1)
Quarter: 2024Q4

REPORT INFORMATION
  Report Type: Other
  Country: PL (occurrence: PL)
  Receive Date: 20241220
  Receipt Date: 20241220
  Transmission Date: 20250114
  Serious: Yes (Other)
  Sender: B BRAUN
  Company Number: PL-B.Braun Medical Inc.-2167498

PATIENT
  Sex: Male
  Weight: 4.29 kg

DRUGS (3)
  1. LEVETIRACETAM [Suspect]
     Active Substance: LEVETIRACETAM
     Indication: Seizure
  2. PHENOBARBITAL [Concomitant]
     Active Substance: PHENOBARBITAL
  3. PYRIDOXINE [Concomitant]
     Active Substance: PYRIDOXINE

REACTIONS (3)
  - Laboratory test interference [Unknown]
  - Product administered to patient of inappropriate age [Unknown]
  - Off label use [Unknown]
